FAERS Safety Report 7299135-8 (Version None)
Quarter: 2010Q4

REPORT INFORMATION
  Report Type: 
  Country: None (occurrence: None)
  Receive Date: 20101223
  Receipt Date: 20101025
  Transmission Date: 20110411
  Serious: Yes (Other)
  Sender: FDA-Public Use
  Company Number: 253037USA

PATIENT
  Age: 23 Year
  Sex: Female

DRUGS (1)
  1. PARAGARD T 380A [Suspect]
     Indication: CONTRACEPTION
     Dosage: I.U.
     Dates: start: 20090101, end: 20101019

REACTIONS (3)
  - DEVICE EXPULSION [None]
  - DRUG INEFFECTIVE [None]
  - INTRA-UTERINE DEATH [None]
